FAERS Safety Report 7141364-8 (Version None)
Quarter: 2010Q4

REPORT INFORMATION
  Report Type: 
  Country: None (occurrence: None)
  Receive Date: 20101202
  Receipt Date: 20101202
  Transmission Date: 20110411
  Serious: Yes (Other)
  Sender: FDA-Public Use
  Company Number: None

PATIENT
  Age: 74 Year
  Sex: Male
  Weight: 95.2554 kg

DRUGS (2)
  1. LOPID [Suspect]
  2. SIMVASTATIN [Suspect]

REACTIONS (7)
  - CARTILAGE INJURY [None]
  - DEHYDRATION [None]
  - EAR PAIN [None]
  - MUSCLE ATROPHY [None]
  - MYOPATHY [None]
  - SNEEZING [None]
  - VOMITING [None]
